FAERS Safety Report 12956417 (Version 1)
Quarter: 2016Q4

REPORT INFORMATION
  Report Type: Spontaneous
  Country: US (occurrence: US)
  Receive Date: 20161119
  Receipt Date: 20161119
  Transmission Date: 20170207
  Serious: Yes (Other)
  Sender: FDA-Public Use
  Company Number: US-ZYDUS-012683

PATIENT
  Age: 33 Year
  Sex: Male

DRUGS (4)
  1. VALPROIC ACID. [Suspect]
     Active Substance: VALPROIC ACID
     Indication: PSYCHIATRIC SYMPTOM
     Dosage: DIVALPROEX ER 1500 MG QHS
     Route: 065
  2. TRAZODONE [Suspect]
     Active Substance: TRAZODONE HYDROCHLORIDE
     Indication: PSYCHIATRIC SYMPTOM
     Dosage: 50 MG QAM AND 100 MG QHS
     Route: 065
  3. PALIPERIDONE. [Suspect]
     Active Substance: PALIPERIDONE
     Indication: PSYCHIATRIC SYMPTOM
     Dosage: 156 MG IM Q 28 DAYS
     Route: 030
  4. BENZATROPINE [Suspect]
     Active Substance: BENZTROPINE
     Indication: PSYCHIATRIC SYMPTOM
     Route: 065

REACTIONS (1)
  - Priapism [Recovered/Resolved]
